FAERS Safety Report 8233738-9 (Version None)
Quarter: 2012Q1

REPORT INFORMATION
  Report Type: 
  Country: None (occurrence: None)
  Receive Date: 20120326
  Receipt Date: 20120322
  Transmission Date: 20120608
  Serious: Yes (Other)
  Sender: FDA-Public Use
  Company Number: PHHY2012ES025010

PATIENT
  Age: 80 Year
  Sex: Female

DRUGS (7)
  1. EXELON [Suspect]
     Indication: DEMENTIA
     Dosage: 4.6 MG, UNK
     Route: 062
     Dates: start: 20110221, end: 20110415
  2. IBUPROFEN [Concomitant]
     Dosage: UNK UKN, UNK
     Route: 048
     Dates: start: 20110131
  3. AMLODIPINO [Concomitant]
     Dosage: 10 MG, DAILY
     Route: 048
     Dates: start: 20100118
  4. ASPIRIN [Concomitant]
     Dosage: UNK UKN, UNK
     Route: 048
     Dates: start: 20110221
  5. AMBROXOL [Concomitant]
  6. METFORMIN HCL [Concomitant]
  7. GLIMEPIRIDE [Concomitant]
     Dosage: 1MG DAILY
     Route: 048
     Dates: start: 20091212

REACTIONS (1)
  - TRANSAMINASES INCREASED [None]
